FAERS Safety Report 4732919-6 (Version None)
Quarter: 2005Q3

REPORT INFORMATION
  Report Type: 
  Country: None (occurrence: None)
  Receive Date: 20050803
  Receipt Date: 20050517
  Transmission Date: 20060218
  Serious: Yes (Other)
  Sender: FDA-Public Use
  Company Number: US-GLAXOSMITHKLINE-A0558995A

PATIENT
  Age: 69 Year
  Sex: Female

DRUGS (4)
  1. AVANDAMET [Suspect]
     Dosage: 1TAB TWICE PER DAY
     Route: 048
     Dates: start: 20030101
  2. FORTAMET [Concomitant]
  3. LIPITOR [Concomitant]
  4. AVALIDE [Concomitant]

REACTIONS (1)
  - ANAEMIA [None]
